FAERS Safety Report 22925315 (Version 3)
Quarter: 2023Q4

REPORT INFORMATION
  Report Type: Report from Study
  Country: GB (occurrence: GB)
  Receive Date: 20230908
  Receipt Date: 20231120
  Transmission Date: 20240109
  Serious: Yes (Other)
  Sender: FDA-Public Use
  Company Number: GB-002147023-NVSC2023GB194034

PATIENT
  Sex: Female

DRUGS (2)
  1. KESIMPTA [Suspect]
     Active Substance: OFATUMUMAB
     Indication: Relapsing-remitting multiple sclerosis
     Dosage: 20 MG, QMO
     Route: 058
     Dates: start: 202307
  2. KESIMPTA [Suspect]
     Active Substance: OFATUMUMAB
     Dosage: 20 MG, QW
     Route: 058
     Dates: start: 202309

REACTIONS (2)
  - Suicide attempt [Unknown]
  - Skin discolouration [Not Recovered/Not Resolved]

NARRATIVE: CASE EVENT DATE: 20230801
